FAERS Safety Report 5575426-3 (Version None)
Quarter: 2007Q4

REPORT INFORMATION
  Report Type: 
  Country: None (occurrence: None)
  Receive Date: 20071227
  Receipt Date: 20071130
  Transmission Date: 20080405
  Serious: No
  Sender: FDA-Public Use
  Company Number: US-BOEHRINGER INGELHEIM PHARMACEUTICALS, INC.-2007-BP-25394BP

PATIENT
  Sex: Male

DRUGS (1)
  1. COMBIVENT [Suspect]
     Indication: BRONCHIAL DISORDER
     Route: 055
     Dates: start: 20071001

REACTIONS (3)
  - COUGH [None]
  - DRY MOUTH [None]
  - DRY THROAT [None]
